FAERS Safety Report 8266288-4 (Version None)
Quarter: 2012Q1

REPORT INFORMATION
  Report Type: 
  Country: None (occurrence: None)
  Receive Date: 20120327
  Receipt Date: 20091103
  Transmission Date: 20120608
  Serious: Yes (Other)
  Sender: FDA-Public Use
  Company Number: PHEH2009US11111

PATIENT
  Age: 47 Year
  Sex: Male
  Weight: 95.4368 kg

DRUGS (4)
  1. METFORMIN HCL [Concomitant]
  2. GEMFIBROZIL [Concomitant]
  3. GLEEVEC [Suspect]
     Indication: CHRONIC MYELOID LEUKAEMIA
     Dosage: 600 MG,  , ORAL
     Route: 048
     Dates: start: 20081015, end: 20090904
  4. BENZAEPRIL (BENAZEPRIL) [Concomitant]

REACTIONS (1)
  - PANCYTOPENIA [None]
